FAERS Safety Report 16218624 (Version 3)
Quarter: 2020Q4

REPORT INFORMATION
  Report Type: Spontaneous
  Country: US (occurrence: US)
  Receive Date: 20190419
  Receipt Date: 20201228
  Transmission Date: 20210113
  Serious: Yes (Other)
  Sender: FDA-Public Use
  Company Number: US-TAKEDA-2019TUS022042

PATIENT
  Sex: Female
  Weight: 99.77 kg

DRUGS (1)
  1. NINLARO [Suspect]
     Active Substance: IXAZOMIB CITRATE
     Indication: PLASMA CELL MYELOMA
     Dosage: 4 MILLIGRAM
     Route: 048
     Dates: start: 20180516

REACTIONS (4)
  - Lung neoplasm malignant [Unknown]
  - Gait disturbance [Unknown]
  - Sciatica [Unknown]
  - Blood potassium decreased [Unknown]
